FAERS Safety Report 25426989 (Version 1)
Quarter: 2025Q2

REPORT INFORMATION
  Report Type: Spontaneous
  Country: NL (occurrence: NL)
  Receive Date: 20250612
  Receipt Date: 20250612
  Transmission Date: 20250716
  Serious: Yes (Life-Threatening, Hospitalization, Other)
  Sender: AUROBINDO
  Company Number: NL-LRB-01060082

PATIENT
  Age: 21 Year
  Sex: Female
  Weight: 74 kg

DRUGS (1)
  1. ETHINYL ESTRADIOL\LEVONORGESTREL [Suspect]
     Active Substance: ETHINYL ESTRADIOL\LEVONORGESTREL
     Indication: Contraception
     Dosage: 1 DOSAGE FORM, ONCE A DAY,1 DAY(1 X PER DAG 1 STUK)
     Route: 048
     Dates: start: 20160420

REACTIONS (3)
  - Headache [Not Recovered/Not Resolved]
  - Hemianopia [Not Recovered/Not Resolved]
  - Cerebral infarction [Not Recovered/Not Resolved]
